FAERS Safety Report 26216789 (Version 1)
Quarter: 2025Q4

REPORT INFORMATION
  Report Type: Spontaneous
  Country: PR (occurrence: US)
  Receive Date: 20251231
  Receipt Date: 20251231
  Transmission Date: 20260117
  Serious: Yes (Hospitalization)
  Sender: GLAXOSMITHKLINE
  Company Number: PR-GLAXOSMITHKLINE INC-US2025AMR167368

PATIENT
  Sex: Male

DRUGS (1)
  1. NUCALA [Suspect]
     Active Substance: MEPOLIZUMAB
     Indication: Asthma
     Dosage: 100 MG, MO, INJECTION

REACTIONS (1)
  - Haemoglobin decreased [Recovered/Resolved]
